FAERS Safety Report 16014938 (Version 1)
Quarter: 2019Q1

REPORT INFORMATION
  Report Type: Spontaneous
  Country: US (occurrence: US)
  Receive Date: 20190227
  Receipt Date: 20190227
  Transmission Date: 20190418
  Serious: No
  Sender: FDA-Public Use
  Company Number: US-AMGEN-USASP2019028656

PATIENT
  Age: 72 Year
  Sex: Female

DRUGS (1)
  1. CORLANOR [Suspect]
     Active Substance: IVABRADINE HYDROCHLORIDE
     Indication: CARDIAC FAILURE
     Dosage: 2.5 MG, BID (IN THE MORNING AND AT NIGHT)
     Route: 065
     Dates: start: 2017

REACTIONS (1)
  - Hypotension [Unknown]
